FAERS Safety Report 6570500-7 (Version None)
Quarter: 2010Q1

REPORT INFORMATION
  Report Type: 
  Country: None (occurrence: None)
  Receive Date: 20100204
  Receipt Date: 20091109
  Transmission Date: 20100710
  Serious: No
  Sender: FDA-Public Use
  Company Number: A0813433A

PATIENT
  Age: 31 Year
  Sex: Female
  Weight: 47.7 kg

DRUGS (2)
  1. ARIXTRA [Suspect]
     Indication: DRUG USE FOR UNKNOWN INDICATION
     Dosage: 2.5MG PER DAY
     Route: 065
     Dates: start: 20091017, end: 20091022
  2. TRANSDERM SCOP [Concomitant]

REACTIONS (1)
  - VISION BLURRED [None]
